FAERS Safety Report 14079009 (Version 2)
Quarter: 2017Q4

REPORT INFORMATION
  Report Type: Spontaneous
  Country: LV (occurrence: LV)
  Receive Date: 20171012
  Receipt Date: 20171026
  Transmission Date: 20180321
  Serious: Yes (Death, Hospitalization)
  Sender: FDA-Public Use
  Company Number: LV-SA-2017SA144238

PATIENT
  Age: 4 Year
  Sex: Male
  Weight: 14 kg

DRUGS (1)
  1. MYOZYME [Suspect]
     Active Substance: ALGLUCOSIDASE ALFA
     Indication: GLYCOGEN STORAGE DISEASE TYPE II
     Route: 041
     Dates: start: 20131009, end: 20170810

REACTIONS (5)
  - Brain hypoxia [Fatal]
  - Respiratory failure [Fatal]
  - Enterobacter sepsis [Fatal]
  - Nervous system disorder [Fatal]
  - Pneumonia [Fatal]

NARRATIVE: CASE EVENT DATE: 20170802
